FAERS Safety Report 9118719 (Version 1)
Quarter: 2013Q1

REPORT INFORMATION
  Report Type: Spontaneous
  Country: GR (occurrence: None)
  Receive Date: 20130128
  Receipt Date: 20130128
  Transmission Date: 20140127
  Serious: Yes (Other)
  Sender: FDA-Public Use
  Company Number: ACO_33879_2013

PATIENT
  Age: 58 Year
  Sex: Female

DRUGS (2)
  1. FAMPYRA [Suspect]
     Indication: MULTIPLE SCLEROSIS
     Route: 048
  2. COPAXONE (GLATIRAMER ACETATE) [Concomitant]

REACTIONS (3)
  - Dizziness [None]
  - Headache [None]
  - Akinesia [None]
